FAERS Safety Report 14455114 (Version 3)
Quarter: 2018Q1

REPORT INFORMATION
  Report Type: Report from Study
  Country: US (occurrence: US)
  Receive Date: 20180129
  Receipt Date: 20180314
  Transmission Date: 20180509
  Serious: Yes (Hospitalization)
  Sender: FDA-Public Use
  Company Number: US-BIOGEN-2018BI00516263

PATIENT
  Age: 63 Year
  Sex: Female

DRUGS (3)
  1. TYSABRI [Suspect]
     Active Substance: NATALIZUMAB
     Indication: MULTIPLE SCLEROSIS
     Route: 065
     Dates: start: 20130828, end: 20171018
  2. TYSABRI [Suspect]
     Active Substance: NATALIZUMAB
     Route: 065
     Dates: end: 20180122
  3. KEPPRA [Concomitant]
     Active Substance: LEVETIRACETAM
     Indication: CONVULSION PROPHYLAXIS
     Route: 065

REACTIONS (3)
  - Meningitis bacterial [Recovered/Resolved]
  - Encephalopathy [Recovered/Resolved]
  - Mastoiditis [Recovered/Resolved]

NARRATIVE: CASE EVENT DATE: 20171121
